FAERS Safety Report 9836789 (Version 1)
Quarter: 2013Q4

REPORT INFORMATION
  Report Type: Spontaneous
  Country: US (occurrence: None)
  Receive Date: 20131121
  Receipt Date: 20131121
  Transmission Date: 20140711
  Serious: No
  Sender: FDA-Public Use
  Company Number: 1000047908

PATIENT
  Sex: Male

DRUGS (1)
  1. TUDORZA PRESSAIR [Suspect]
     Dates: start: 201308

REACTIONS (1)
  - Intraocular pressure increased [None]
